FAERS Safety Report 7112973-7 (Version None)
Quarter: 2010Q4

REPORT INFORMATION
  Report Type: 
  Country: None (occurrence: None)
  Receive Date: 20101119
  Receipt Date: 20101108
  Transmission Date: 20110411
  Serious: Yes (Hospitalization)
  Sender: FDA-Public Use
  Company Number: CA-JNJFOC-20101103663

PATIENT
  Sex: Female
  Weight: 63.9 kg

DRUGS (11)
  1. REMICADE [Suspect]
     Indication: CROHN'S DISEASE
     Dosage: 12TH INFUSION
     Route: 042
  2. REMICADE [Suspect]
     Route: 042
  3. REMICADE [Suspect]
     Dosage: 11TH INFUSION
     Route: 042
  4. SYNTHROID [Concomitant]
  5. PRILOSEC [Concomitant]
  6. CITALOPRAM HYDROBROMIDE [Concomitant]
  7. VITAMIN D [Concomitant]
  8. CALCIUM [Concomitant]
  9. TETRACYCLINE [Concomitant]
  10. HYDROCHLOROTHIAZIDE [Concomitant]
  11. ACLASTA [Concomitant]

REACTIONS (1)
  - EMPHYSEMA [None]
